FAERS Safety Report 22175407 (Version 3)
Quarter: 2023Q2

REPORT INFORMATION
  Report Type: Spontaneous
  Country: US (occurrence: US)
  Receive Date: 20230405
  Receipt Date: 20230413
  Transmission Date: 20230722
  Serious: No
  Sender: FDA-Public Use
  Company Number: US-UNITED THERAPEUTICS-UNT-2023-007845

PATIENT
  Age: 66 Year
  Sex: Female
  Weight: 81.179 kg

DRUGS (6)
  1. REMODULIN [Suspect]
     Active Substance: TREPROSTINIL
     Indication: Pulmonary arterial hypertension
     Dosage: 0.015 ?G/KG, CONTINUING (SELF-FILL CASSETTE WITH 2.4 ML. RATE OF 27 MCL PER HOUR)
     Route: 058
     Dates: start: 20230316
  2. REMODULIN [Suspect]
     Active Substance: TREPROSTINIL
     Dosage: 0.017 ?G/KG, CONTINUING (SELF-FILL CASSETTE WITH 2.4 ML RATE OF 27 MCL PER HOUR)
     Route: 058
     Dates: start: 202303
  3. REMODULIN [Suspect]
     Active Substance: TREPROSTINIL
     Dosage: UNK, CONTINUING (SELF-FILL WITH 2.7 ML PER CASSETTE RATE; AT A PUMP RATE OF 31 MCL PER HOUR)
     Route: 058
     Dates: start: 202303
  4. REMODULIN [Suspect]
     Active Substance: TREPROSTINIL
     Dosage: 0.016 ?G/KG, CONTINUING
     Route: 058
  5. ADEMPAS [Concomitant]
     Active Substance: RIOCIGUAT
     Indication: Product used for unknown indication
     Dosage: 1.5 MG, TID
     Route: 065
  6. ADEMPAS [Concomitant]
     Active Substance: RIOCIGUAT
     Dosage: UNK
     Route: 065

REACTIONS (14)
  - Infusion site pain [Unknown]
  - Device power source issue [Recovered/Resolved]
  - Infusion site erythema [Unknown]
  - Hypoaesthesia [Unknown]
  - Paraesthesia [Unknown]
  - Oedema peripheral [Unknown]
  - Dyspnoea [Recovered/Resolved]
  - Pain in extremity [Unknown]
  - Post procedural complication [Unknown]
  - Nausea [Recovering/Resolving]
  - Irritable bowel syndrome [Unknown]
  - Device power source issue [Unknown]
  - Pain [Recovering/Resolving]
  - Illness [Recovered/Resolved]

NARRATIVE: CASE EVENT DATE: 20230301
